FAERS Safety Report 8833121 (Version 1)
Quarter: 2012Q4

REPORT INFORMATION
  Report Type: Report from Study
  Country: CA (occurrence: CA)
  Receive Date: 20121010
  Receipt Date: 20121010
  Transmission Date: 20130627
  Serious: Yes (Other)
  Sender: FDA-Public Use
  Company Number: CA-JNJFOC-20121000715

PATIENT
  Sex: Female
  Weight: 92 kg

DRUGS (2)
  1. REMICADE [Suspect]
     Indication: CROHN^S DISEASE
     Route: 042
     Dates: start: 201206
  2. REMICADE [Suspect]
     Indication: CROHN^S DISEASE
     Dosage: start date:MAY (year unspecified)
     Route: 042

REACTIONS (1)
  - Fistula [Unknown]
